FAERS Safety Report 11855920 (Version 3)
Quarter: 2016Q1

REPORT INFORMATION
  Report Type: Spontaneous
  Country: PK (occurrence: PK)
  Receive Date: 20151221
  Receipt Date: 20160217
  Transmission Date: 20160526
  Serious: Yes (Death, Hospitalization)
  Sender: FDA-Public Use
  Company Number: PK-SA-2015SA215308

PATIENT
  Age: 52 Year
  Sex: Female

DRUGS (1)
  1. PLAVIX [Suspect]
     Active Substance: CLOPIDOGREL BISULFATE
     Indication: THROMBOSIS PROPHYLAXIS
     Route: 048
     Dates: start: 2005, end: 20101029

REACTIONS (2)
  - Diabetic nephropathy [Unknown]
  - Arteriovenous fistula site haemorrhage [Fatal]

NARRATIVE: CASE EVENT DATE: 200701
